FAERS Safety Report 24259504 (Version 2)
Quarter: 2025Q2

REPORT INFORMATION
  Report Type: Spontaneous
  Country: CA (occurrence: CA)
  Receive Date: 20240828
  Receipt Date: 20250508
  Transmission Date: 20250716
  Serious: Yes (Other)
  Sender: BEIGENE
  Company Number: CA-BEIGENE-BGN-2024-013417

PATIENT
  Age: 80 Year
  Weight: 54.43 kg

DRUGS (15)
  1. BRUKINSA [Suspect]
     Active Substance: ZANUBRUTINIB
     Indication: Waldenstrom^s macroglobulinaemia
     Dosage: 320 MILLIGRAM, QD (2 CAPSULES TWICE A DAY, 12 HOURS APART, OR FOUR ONCE A DAY)
  2. BRUKINSA [Suspect]
     Active Substance: ZANUBRUTINIB
  3. LEVOTHYROXINE [Concomitant]
     Active Substance: LEVOTHYROXINE
  4. LEVODOPA [Concomitant]
     Active Substance: LEVODOPA
     Indication: Parkinson^s disease
  5. PRAMIPEXOLE [Concomitant]
     Active Substance: PRAMIPEXOLE
     Indication: Parkinson^s disease
  6. THYROID [Concomitant]
     Active Substance: LEVOTHYROXINE\LIOTHYRONINE
     Indication: Thyroid disorder
  7. VITAMIN D [Concomitant]
     Active Substance: VITAMIN D NOS
  8. VITAMIN B12 [Concomitant]
     Active Substance: CYANOCOBALAMIN
  9. PLAVIX [Concomitant]
     Active Substance: CLOPIDOGREL BISULFATE
  10. BISOPROLOL FUMARATE [Concomitant]
     Active Substance: BISOPROLOL FUMARATE
  11. OXYCODONE [Concomitant]
     Active Substance: OXYCODONE
  12. TYLENOL [Concomitant]
     Active Substance: ACETAMINOPHEN
  13. FISH OIL [Concomitant]
     Active Substance: FISH OIL
  14. GLUCOSAMINE SULFATE [Concomitant]
     Active Substance: GLUCOSAMINE SULFATE
  15. MELATONIN [Concomitant]
     Active Substance: MELATONIN

REACTIONS (39)
  - Near death experience [Not Recovered/Not Resolved]
  - Pneumonia viral [Not Recovered/Not Resolved]
  - Amnesia [Unknown]
  - Immune system disorder [Unknown]
  - Pulse absent [Unknown]
  - Lower limb fracture [Unknown]
  - Internal fixation of fracture [Unknown]
  - Sleep disorder [Unknown]
  - Fatigue [Not Recovered/Not Resolved]
  - Somnolence [Not Recovered/Not Resolved]
  - Rapid eye movements sleep abnormal [Unknown]
  - Musculoskeletal stiffness [Unknown]
  - Balance disorder [Unknown]
  - Gait disturbance [Not Recovered/Not Resolved]
  - Arthritis [Not Recovered/Not Resolved]
  - Laboratory test abnormal [Unknown]
  - Atrial appendage closure [Not Recovered/Not Resolved]
  - Contusion [Recovered/Resolved]
  - Wound [Recovered/Resolved]
  - Blood pressure immeasurable [Unknown]
  - General physical health deterioration [Unknown]
  - Dyspnoea [Not Recovered/Not Resolved]
  - COVID-19 [Not Recovered/Not Resolved]
  - Dizziness [Not Recovered/Not Resolved]
  - Asthenia [Not Recovered/Not Resolved]
  - Restless legs syndrome [Not Recovered/Not Resolved]
  - Pain [Not Recovered/Not Resolved]
  - Insomnia [Not Recovered/Not Resolved]
  - Bladder disorder [Not Recovered/Not Resolved]
  - Diarrhoea infectious [Not Recovered/Not Resolved]
  - Illness [Recovered/Resolved]
  - Haemoglobin increased [Not Recovered/Not Resolved]
  - Hysterectomy [Recovered/Resolved]
  - Cervix disorder [Recovered/Resolved]
  - Uterine mass [Recovered/Resolved]
  - Mass [Not Recovered/Not Resolved]
  - Stress [Not Recovered/Not Resolved]
  - Product dose omission issue [Unknown]
  - Product storage error [Not Recovered/Not Resolved]
